FAERS Safety Report 13932115 (Version 1)
Quarter: 2017Q3

REPORT INFORMATION
  Report Type: Other
  Country: IE (occurrence: IE)
  Receive Date: 20170904
  Receipt Date: 20170904
  Transmission Date: 20171127
  Serious: Yes (Other)
  Sender: FDA-Public Use
  Company Number: IE-VELOXIS PHARMACEUTICALS-2025517

PATIENT
  Age: 75 Year
  Sex: Female

DRUGS (2)
  1. IMURAN [Concomitant]
     Active Substance: AZATHIOPRINE
     Route: 065
  2. ENVARSUS XR [Suspect]
     Active Substance: TACROLIMUS
     Indication: DERMATOMYOSITIS
     Route: 065

REACTIONS (3)
  - Histiocytosis haematophagic [Unknown]
  - Intentional product use issue [Unknown]
  - Inappropriate antidiuretic hormone secretion [Unknown]
